FAERS Safety Report 9928027 (Version 1)
Quarter: 2014Q1

REPORT INFORMATION
  Report Type: Report from Study
  Country: US (occurrence: US)
  Receive Date: 20140227
  Receipt Date: 20140227
  Transmission Date: 20141002
  Serious: Yes (Other)
  Sender: FDA-Public Use
  Company Number: US-ROCHE-1352249

PATIENT
  Sex: Female
  Weight: 53.57 kg

DRUGS (14)
  1. AVASTIN [Suspect]
     Indication: GLIOBLASTOMA MULTIFORME
     Route: 065
     Dates: start: 20131201, end: 20131201
  2. MORPHINE [Concomitant]
     Indication: PAIN
     Route: 048
  3. MORPHINE SULFATE [Concomitant]
     Indication: BREAKTHROUGH PAIN
     Dosage: 1-2 TABLETS
     Route: 048
  4. DEXAMETHASONE [Concomitant]
     Indication: SWELLING
     Route: 048
  5. MAGNESIUM OXIDE [Concomitant]
     Indication: MUSCLE SPASMS
     Dosage: 2 TABLETS
     Route: 048
     Dates: start: 201210
  6. ZOFRAN [Concomitant]
     Indication: NAUSEA
  7. TOPAMAX [Concomitant]
     Indication: HEADACHE
     Route: 065
  8. PROTONIX (UNITED STATES) [Concomitant]
     Dosage: TABLETS
     Route: 065
  9. LEVETIRACETAM [Concomitant]
     Indication: CONVULSION
     Route: 065
  10. SIMVASTATIN [Concomitant]
     Route: 065
  11. MAGIC MOUTH WASH (BENADRYL, DEXAMETHASONE, NYSTATIN) [Concomitant]
     Indication: CANDIDA INFECTION
     Route: 065
  12. FLUCONAZOLE [Concomitant]
     Indication: CANDIDA INFECTION
     Route: 065
  13. TEMODAR [Concomitant]
  14. PREDNISONE [Concomitant]

REACTIONS (9)
  - Platelet count decreased [Unknown]
  - Blood glucose increased [Recovered/Resolved]
  - Pain [Not Recovered/Not Resolved]
  - Headache [Not Recovered/Not Resolved]
  - Muscle spasms [Recovering/Resolving]
  - Constipation [Not Recovered/Not Resolved]
  - Haemorrhoids [Unknown]
  - Deafness [Unknown]
  - Candida infection [Unknown]
